FAERS Safety Report 7424645-X (Version None)
Quarter: 2011Q2

REPORT INFORMATION
  Report Type: 
  Country: None (occurrence: None)
  Receive Date: 20110419
  Receipt Date: 20110415
  Transmission Date: 20111010
  Serious: Yes (Other)
  Sender: FDA-Public Use
  Company Number: CN-PFIZER INC-2011057183

PATIENT
  Sex: Male

DRUGS (2)
  1. LIPITOR [Suspect]
     Dosage: 20 MG, 1X/DAY
     Route: 048
     Dates: start: 20100101
  2. LIPITOR [Suspect]
     Dosage: UNK

REACTIONS (3)
  - TRANSIENT ISCHAEMIC ATTACK [None]
  - GINGIVAL BLEEDING [None]
  - AMAUROSIS FUGAX [None]
